FAERS Safety Report 5289742-6 (Version None)
Quarter: 2007Q2

REPORT INFORMATION
  Report Type: 
  Country: None (occurrence: None)
  Receive Date: 20070406
  Receipt Date: 20070405
  Transmission Date: 20071010
  Serious: Yes (Other)
  Sender: FDA-Public Use
  Company Number: FR-BRISTOL-MYERS SQUIBB COMPANY-13454848

PATIENT
  Age: 79 Year
  Sex: Female

DRUGS (5)
  1. ELISOR TABS [Suspect]
     Indication: MYOCARDIAL INFARCTION
     Route: 048
     Dates: end: 20060723
  2. PLAVIX [Suspect]
     Indication: MYOCARDIAL INFARCTION
     Route: 048
     Dates: end: 20060723
  3. OMEPRAZOLE [Concomitant]
  4. CARDENSIEL [Concomitant]
  5. FUROSEMIDE [Concomitant]

REACTIONS (5)
  - ALANINE AMINOTRANSFERASE INCREASED [None]
  - ASPARTATE AMINOTRANSFERASE INCREASED [None]
  - GAMMA-GLUTAMYLTRANSFERASE INCREASED [None]
  - JAUNDICE [None]
  - MALIGNANT NEOPLASM OF AMPULLA OF VATER [None]
